FAERS Safety Report 12237735 (Version 1)
Quarter: 2016Q2

REPORT INFORMATION
  Report Type: Spontaneous
  Country: US (occurrence: None)
  Receive Date: 20160404
  Receipt Date: 20160404
  Transmission Date: 20160815
  Serious: No
  Sender: FDA-Public Use
  Company Number: None

PATIENT
  Age: 61 Year
  Sex: Male
  Weight: 65.77 kg

DRUGS (7)
  1. LORSARTAN POTASSIUM [Concomitant]
  2. ATORVASTATIN 40MG TABLET, 40 MG [Suspect]
     Active Substance: ATORVASTATIN
     Indication: BLOOD CHOLESTEROL INCREASED
     Route: 048
     Dates: start: 20151001, end: 20160328
  3. ABUTEROL [Concomitant]
  4. SPIRIVA [Concomitant]
     Active Substance: TIOTROPIUM BROMIDE MONOHYDRATE
  5. ADVAIR DISKUS [Concomitant]
     Active Substance: FLUTICASONE PROPIONATE\SALMETEROL XINAFOATE
  6. BENADRYL [Concomitant]
     Active Substance: DIPHENHYDRAMINE HYDROCHLORIDE
  7. NORCO [Concomitant]
     Active Substance: ACETAMINOPHEN\HYDROCODONE BITARTRATE

REACTIONS (6)
  - Neck pain [None]
  - Skin haemorrhage [None]
  - Wheezing [None]
  - Musculoskeletal pain [None]
  - Muscle spasms [None]
  - Musculoskeletal stiffness [None]

NARRATIVE: CASE EVENT DATE: 20160201
